FAERS Safety Report 11701628 (Version 1)
Quarter: 2015Q4

REPORT INFORMATION
  Report Type: Spontaneous
  Country: US (occurrence: US)
  Receive Date: 20151105
  Receipt Date: 20151105
  Transmission Date: 20160304
  Serious: Yes (Death)
  Sender: FDA-Public Use
  Company Number: US-ACTELION-A-NJ2015-126459

PATIENT
  Age: 67 Year
  Sex: Female

DRUGS (11)
  1. SILDENAFIL. [Concomitant]
     Active Substance: SILDENAFIL
  2. HYDROXYCHLOROQUINE [Concomitant]
     Active Substance: HYDROXYCHLOROQUINE
  3. TYVASO [Concomitant]
     Active Substance: TREPROSTINIL
  4. ZAROXOLYN [Concomitant]
     Active Substance: METOLAZONE
  5. OPSUMIT [Suspect]
     Active Substance: MACITENTAN
     Indication: PULMONARY ARTERIAL HYPERTENSION
     Dosage: 10 MG, UNK
     Route: 048
     Dates: start: 20150626, end: 20150920
  6. LANOXIN [Concomitant]
     Active Substance: DIGOXIN
  7. SPIRONOLACTONE. [Concomitant]
     Active Substance: SPIRONOLACTONE
  8. FUROSEMIDE. [Concomitant]
     Active Substance: FUROSEMIDE
  9. CARDIZEM [Concomitant]
     Active Substance: DILTIAZEM HYDROCHLORIDE
  10. COZAAR [Concomitant]
     Active Substance: LOSARTAN POTASSIUM
  11. PREVACID [Concomitant]
     Active Substance: LANSOPRAZOLE

REACTIONS (1)
  - Aortic dilatation [Fatal]

NARRATIVE: CASE EVENT DATE: 20150920
